FAERS Safety Report 8755778 (Version 2)
Quarter: 2013Q4

REPORT INFORMATION
  Report Type: Spontaneous
  Country: US (occurrence: US)
  Receive Date: 20120827
  Receipt Date: 20131101
  Transmission Date: 20140711
  Serious: No
  Sender: FDA-Public Use
  Company Number: US-009507513-1208USA010272

PATIENT
  Age: 27 Year
  Sex: Female
  Weight: 74.38 kg

DRUGS (1)
  1. IMPLANON [Suspect]
     Indication: CONTRACEPTION
     Dosage: 1 DF, UNK
     Route: 059
     Dates: start: 20110621, end: 20120625

REACTIONS (2)
  - Skin discolouration [Recovered/Resolved]
  - Menstruation delayed [Not Recovered/Not Resolved]
